FAERS Safety Report 4922963-8 (Version None)
Quarter: 2006Q1

REPORT INFORMATION
  Report Type: 
  Country: None (occurrence: None)
  Receive Date: 20060224
  Receipt Date: 20050414
  Transmission Date: 20060701
  Serious: Yes (Hospitalization, Disabling)
  Sender: FDA-Public Use
  Company Number: US-MERCK-0504USA02528

PATIENT
  Age: 51 Year
  Sex: Female
  Weight: 118 kg

DRUGS (7)
  1. VIOXX [Suspect]
     Indication: ARTHRITIS
     Route: 048
     Dates: start: 20001201, end: 20021201
  2. VIOXX [Suspect]
     Indication: ARTHRALGIA
     Route: 048
     Dates: start: 20001201, end: 20021201
  3. PREVACID [Concomitant]
     Route: 065
  4. ALLOPURINOL [Concomitant]
     Route: 065
  5. ALBUTEROL [Concomitant]
     Route: 065
  6. PROPACET 100 [Concomitant]
     Route: 065
  7. CLONIDINE [Concomitant]
     Route: 065

REACTIONS (3)
  - BONE DISORDER [None]
  - CARDIAC DISORDER [None]
  - GASTROINTESTINAL DISORDER [None]
